FAERS Safety Report 4834210-6 (Version None)
Quarter: 2005Q4

REPORT INFORMATION
  Report Type: 
  Country: None (occurrence: None)
  Receive Date: 20051122
  Receipt Date: 20050217
  Transmission Date: 20060501
  Serious: Yes (Disabling, Other)
  Sender: FDA-Public Use
  Company Number: 2005SE00984

PATIENT
  Age: 15946 Day
  Sex: Male

DRUGS (6)
  1. MARCAINE [Suspect]
     Indication: ANAESTHESIA
     Route: 053
     Dates: start: 20040115, end: 20040115
  2. PROPOFOL [Suspect]
     Indication: ANAESTHESIA
     Route: 042
  3. EPINEPHRINE [Concomitant]
  4. DERMALON [Concomitant]
  5. FENTANYL [Concomitant]
     Indication: ANAESTHESIA
  6. ULTIVA [Concomitant]
     Indication: ANAESTHESIA

REACTIONS (10)
  - ANXIETY [None]
  - DEPRESSION [None]
  - DRUG TOXICITY [None]
  - GRAND MAL CONVULSION [None]
  - ILLUSION [None]
  - INCORRECT ROUTE OF DRUG ADMINISTRATION [None]
  - INSOMNIA [None]
  - NIGHTMARE [None]
  - POST-TRAUMATIC STRESS DISORDER [None]
  - THANATOPHOBIA [None]
